FAERS Safety Report 25147495 (Version 1)
Quarter: 2025Q2

REPORT INFORMATION
  Report Type: Spontaneous
  Country: NO (occurrence: NO)
  Receive Date: 20250402
  Receipt Date: 20250402
  Transmission Date: 20250717
  Serious: Yes (Hospitalization, Other)
  Sender: BRISTOL MYERS SQUIBB
  Company Number: NO-BRISTOL-MYERS SQUIBB COMPANY-2025-045375

PATIENT
  Age: 71 Year

DRUGS (3)
  1. NIVOLUMAB [Suspect]
     Active Substance: NIVOLUMAB
     Indication: Bladder cancer
  2. GEMCITABINE [Suspect]
     Active Substance: GEMCITABINE
     Indication: Bladder cancer
  3. CISPLATIN [Suspect]
     Active Substance: CISPLATIN
     Indication: Bladder cancer

REACTIONS (4)
  - Pyrexia [Unknown]
  - Renal failure [Unknown]
  - Arthralgia [Unknown]
  - Enterobacter sepsis [Unknown]
